FAERS Safety Report 10060588 (Version 2)
Quarter: 2014Q2

REPORT INFORMATION
  Report Type: Spontaneous
  Country: US (occurrence: US)
  Receive Date: 20140404
  Receipt Date: 20140404
  Transmission Date: 20141212
  Serious: Yes (Other)
  Sender: FDA-Public Use
  Company Number: US-TEVA-464878USA

PATIENT
  Sex: Female

DRUGS (2)
  1. LABETALOL [Suspect]
  2. PREDNISONE [Concomitant]

REACTIONS (7)
  - Renal failure [Unknown]
  - Hypersensitivity [Unknown]
  - Erythema [Unknown]
  - Vascular skin disorder [Unknown]
  - Extrasystoles [Unknown]
  - Heart rate increased [Unknown]
  - Chest discomfort [Unknown]
